FAERS Safety Report 5174402-2 (Version None)
Quarter: 2006Q4

REPORT INFORMATION
  Report Type: 
  Country: None (occurrence: None)
  Receive Date: 20061214
  Receipt Date: 20061206
  Transmission Date: 20070319
  Serious: Yes (Hospitalization)
  Sender: FDA-Public Use
  Company Number: US-ELI_LILLY_AND_COMPANY-US200612001101

PATIENT
  Age: 67 Year
  Sex: Female

DRUGS (9)
  1. HUMALOG MIX 75/25 [Suspect]
     Indication: DIABETES MELLITUS
     Dosage: 46 U, EACH MORNING
     Dates: start: 20061202
  2. HUMALOG MIX 75/25 [Suspect]
     Dosage: 26 U, EACH EVENING
     Dates: start: 20061202
  3. HUMALOG MIX 75/25 [Suspect]
     Dosage: 48 U, EACH MORNING
     Dates: start: 20061201
  4. HUMALOG MIX 75/25 [Suspect]
     Dosage: 28 U, EACH EVENING
     Dates: start: 20061201
  5. HUMALOG [Suspect]
     Dosage: UNK, UNKNOWN
     Dates: start: 20020101, end: 20061021
  6. HUMULIN R [Suspect]
     Indication: DIABETES MELLITUS
     Dosage: UNK, UNKNOWN
     Dates: start: 20061021, end: 20061202
  7. LANTUS [Concomitant]
     Indication: BLOOD GLUCOSE INCREASED
     Dosage: UNK, UNKNOWN
     Dates: start: 20061021, end: 20061202
  8. AVANDIA [Concomitant]
     Dosage: UNK, UNKNOWN
     Dates: end: 20061001
  9. GLUCOPHAGE [Concomitant]
     Dosage: UNK, UNKNOWN

REACTIONS (7)
  - BLOOD GLUCOSE INCREASED [None]
  - DRUG INEFFECTIVE [None]
  - FATIGUE [None]
  - GASTRIC ULCER HAEMORRHAGE [None]
  - HYPERSENSITIVITY [None]
  - PHARMACEUTICAL PRODUCT COMPLAINT [None]
  - RECTAL HAEMORRHAGE [None]
